FAERS Safety Report 6183583-3 (Version None)
Quarter: 2009Q2

REPORT INFORMATION
  Report Type: 
  Country: None (occurrence: None)
  Receive Date: 20090508
  Receipt Date: 20090428
  Transmission Date: 20091009
  Serious: Yes (Hospitalization)
  Sender: FDA-Public Use
  Company Number: SE-PFIZER INC-2009204255

PATIENT
  Age: 76 Year

DRUGS (12)
  1. SOLU-MEDROL [Suspect]
     Indication: BLOOD CREATINE PHOSPHOKINASE INCREASED
     Dosage: UNK
     Route: 042
     Dates: start: 20090303
  2. PREDNISOLONE AND PREDNISOLONE STEAGLATE [Suspect]
     Dosage: UNK
     Route: 048
     Dates: start: 20090226
  3. SIMVASTATIN [Suspect]
     Dosage: UNK
     Route: 048
     Dates: start: 20020101, end: 20090225
  4. DELTISON [Suspect]
     Dosage: UNK
     Route: 048
     Dates: start: 20090311
  5. DALACIN [Concomitant]
     Dosage: UNK
  6. ANAGRELIDE [Concomitant]
     Dosage: UNK
  7. MIRTAZAPINE [Concomitant]
     Dosage: UNK
  8. FUCIDINE CAP [Concomitant]
     Dosage: UNK
  9. POTASSIUM CHLORIDE [Concomitant]
     Dosage: UNK
  10. SUSCARD [Concomitant]
     Dosage: UNK
  11. TROMBYL [Concomitant]
     Dosage: UNK
  12. ISOSORBIDE MONONITRATE [Concomitant]
     Dosage: UNK

REACTIONS (2)
  - DUODENAL ULCER [None]
  - RHABDOMYOLYSIS [None]
